FAERS Safety Report 20106255 (Version 1)
Quarter: 2021Q4

REPORT INFORMATION
  Report Type: Spontaneous
  Country: FR (occurrence: FR)
  Receive Date: 20211124
  Receipt Date: 20211124
  Transmission Date: 20220303
  Serious: Yes (Hospitalization)
  Sender: FDA-Public Use
  Company Number: None

PATIENT
  Age: 8 Month
  Sex: Female
  Weight: 8.5 kg

DRUGS (2)
  1. SODIUM CHLORIDE [Suspect]
     Active Substance: SODIUM CHLORIDE
     Indication: Nasal obstruction
     Dosage: AS NECESSARY
     Route: 045
     Dates: start: 20210922, end: 20210922
  2. CHLORHEXIDINE [Suspect]
     Active Substance: CHLORHEXIDINE
     Indication: Wrong product administered
     Dosage: SOLUTION FOR SKIN APPLICATION IN SINGLE-DOSE CONTAINER ; AS NECESSARY
     Route: 045
     Dates: start: 20210922, end: 20210922

REACTIONS (5)
  - Cyanosis [Recovered/Resolved]
  - Respiratory distress [Recovered/Resolved]
  - Product confusion [Recovered/Resolved]
  - Wrong product administered [Recovered/Resolved]
  - Medication error [Recovered/Resolved]

NARRATIVE: CASE EVENT DATE: 20210922
